FAERS Safety Report 7070205-2 (Version None)
Quarter: 2010Q4

REPORT INFORMATION
  Report Type: 
  Country: None (occurrence: None)
  Receive Date: 20101028
  Receipt Date: 20101021
  Transmission Date: 20110411
  Serious: No
  Sender: FDA-Public Use
  Company Number: US-WYE-H17552410

PATIENT
  Sex: Female

DRUGS (2)
  1. ADVIL [Suspect]
     Indication: JOINT SWELLING
     Route: 048
     Dates: start: 20100908, end: 20100915
  2. ADVIL [Suspect]
     Route: 048
     Dates: start: 20100916

REACTIONS (1)
  - DRUG INEFFECTIVE [None]
